FAERS Safety Report 4578726-9 (Version None)
Quarter: 2005Q1

REPORT INFORMATION
  Report Type: 
  Country: None (occurrence: None)
  Receive Date: 20050211
  Receipt Date: 20050120
  Transmission Date: 20050727
  Serious: Yes (Disabling)
  Sender: FDA-Public Use
  Company Number: ZA-GLAXOSMITHKLINE-B0365820A

PATIENT
  Age: 64 Year
  Sex: Male
  Weight: 115 kg

DRUGS (2)
  1. ZYBAN [Suspect]
     Dosage: 150MG TWICE PER DAY
     Route: 065
     Dates: start: 20040901
  2. MULTI-VITAMIN [Concomitant]
     Indication: ILL-DEFINED DISORDER
     Dosage: 2CAP PER DAY
     Route: 065

REACTIONS (5)
  - AGEUSIA [None]
  - ANOSMIA [None]
  - DYSGEUSIA [None]
  - HYPERTENSION [None]
  - RHINORRHOEA [None]
